FAERS Safety Report 10503181 (Version 2)
Quarter: 2014Q4

REPORT INFORMATION
  Report Type: Not Available
  Country: TW (occurrence: TW)
  Receive Date: 20141007
  Receipt Date: 20141009
  Transmission Date: 20150528
  Serious: Yes (Other)
  Sender: FDA-Public Use
  Company Number: TW-CELGENE-TWN-2014094613

PATIENT
  Age: 46 Year
  Sex: Female

DRUGS (1)
  1. REVLIMID [Suspect]
     Active Substance: LENALIDOMIDE
     Indication: PLASMA CELL MYELOMA
     Route: 048

REACTIONS (1)
  - Pregnancy test false positive [Unknown]

NARRATIVE: CASE EVENT DATE: 20140925
